FAERS Safety Report 21840171 (Version 1)
Quarter: 2023Q1

REPORT INFORMATION
  Report Type: Spontaneous
  Country: CN (occurrence: None)
  Receive Date: 20230110
  Receipt Date: 20230110
  Transmission Date: 20230417
  Serious: Yes (Other)
  Sender: FDA-Public Use
  Company Number: CN-ROCHE-3259190

PATIENT
  Age: 70 Year
  Sex: Female
  Weight: 43 kg

DRUGS (2)
  1. CAPECITABINE [Suspect]
     Active Substance: CAPECITABINE
     Indication: Colon cancer metastatic
     Route: 048
     Dates: start: 20221117
  2. BEVACIZUMAB [Suspect]
     Active Substance: BEVACIZUMAB
     Indication: Colon cancer metastatic
     Route: 041
     Dates: start: 20221118

REACTIONS (1)
  - Myelosuppression [Recovering/Resolving]

NARRATIVE: CASE EVENT DATE: 20221123
